FAERS Safety Report 11494474 (Version 1)
Quarter: 2015Q3

REPORT INFORMATION
  Report Type: Spontaneous
  Country: US (occurrence: US)
  Receive Date: 20150911
  Receipt Date: 20150911
  Transmission Date: 20151125
  Serious: No
  Sender: FDA-Public Use
  Company Number: US-ROCHE-802675

PATIENT
  Sex: Female

DRUGS (2)
  1. RIBASPHERE [Suspect]
     Active Substance: RIBAVIRIN
     Indication: CHRONIC HEPATITIS C
     Route: 048
  2. PEGASYS [Suspect]
     Active Substance: PEGINTERFERON ALFA-2A
     Indication: CHRONIC HEPATITIS C
     Dosage: THERAPY FOR 12 WEEKS.
     Route: 058

REACTIONS (7)
  - Pain [Unknown]
  - Drug dose omission [Unknown]
  - Muscle spasms [Unknown]
  - Headache [Unknown]
  - Migraine [Unknown]
  - Pruritus [Unknown]
  - Myalgia [Unknown]
